FAERS Safety Report 11184991 (Version 5)
Quarter: 2015Q4

REPORT INFORMATION
  Report Type: Spontaneous
  Country: RU (occurrence: RU)
  Receive Date: 20150612
  Receipt Date: 20151009
  Transmission Date: 20160304
  Serious: Yes (Other)
  Sender: FDA-Public Use
  Company Number: RU-UCBSA-2015018713

PATIENT
  Sex: Female
  Weight: 54 kg

DRUGS (2)
  1. KEPPRA [Suspect]
     Active Substance: LEVETIRACETAM
     Indication: JUVENILE MYOCLONIC EPILEPSY
     Dosage: 1000 MG, 2X/DAY (BID)
     Route: 048
     Dates: start: 201103
  2. KEPPRA [Suspect]
     Active Substance: LEVETIRACETAM
     Dosage: UNKNOWN DOSE

REACTIONS (3)
  - Pregnancy [Unknown]
  - Abortion induced [Recovered/Resolved]
  - Twin pregnancy [Unknown]

NARRATIVE: CASE EVENT DATE: 2014
